FAERS Safety Report 7247010-7 (Version None)
Quarter: 2011Q1

REPORT INFORMATION
  Report Type: 
  Country: None (occurrence: None)
  Receive Date: 20110127
  Receipt Date: 20110117
  Transmission Date: 20110831
  Serious: Yes (Hospitalization, Other)
  Sender: FDA-Public Use
  Company Number: US-JNJFOC-20091202543

PATIENT
  Sex: Female
  Weight: 65.77 kg

DRUGS (2)
  1. ORTHO TRI-CYCLEN [Suspect]
     Indication: ILL-DEFINED DISORDER
     Route: 065
  2. ORTHO TRI-CYCLEN LO [Suspect]
     Indication: ILL-DEFINED DISORDER
     Route: 065

REACTIONS (7)
  - HOSPITALISATION [None]
  - HEADACHE [None]
  - FATIGUE [None]
  - FEELING ABNORMAL [None]
  - CHEST PAIN [None]
  - PARALYSIS [None]
  - INFLUENZA LIKE ILLNESS [None]
